FAERS Safety Report 5632023-9 (Version None)
Quarter: 2008Q1

REPORT INFORMATION
  Report Type: 
  Country: None (occurrence: None)
  Receive Date: 20080213
  Receipt Date: 20080128
  Transmission Date: 20080703
  Serious: Yes (Hospitalization)
  Sender: FDA-Public Use
  Company Number: 8028778

PATIENT
  Age: 38 Year
  Sex: Male

DRUGS (5)
  1. KEPPRA [Suspect]
     Dosage: 1 G 2/D PO
     Route: 048
     Dates: start: 20061101
  2. FOLIC ACID [Concomitant]
  3. LAMOTRIGINE [Concomitant]
  4. LANSOPRAZOLE [Concomitant]
  5. TEGRETOL [Concomitant]

REACTIONS (1)
  - PANCREATITIS [None]
